FAERS Safety Report 13607318 (Version 2)
Quarter: 2017Q2

REPORT INFORMATION
  Report Type: Spontaneous
  Country: US (occurrence: US)
  Receive Date: 20170602
  Receipt Date: 20170614
  Transmission Date: 20170830
  Serious: No
  Sender: FDA-Public Use
  Company Number: US-VERTEX PHARMACEUTICALS-2017-002914

PATIENT
  Sex: Female
  Weight: 58 kg

DRUGS (38)
  1. ASPIRIN. [Concomitant]
     Active Substance: ASPIRIN
     Dosage: 81 MG, EVERY MONDAYS, WEDNESDAYS AND FRIDAYS
     Route: 048
  2. VITAMIN D3 [Concomitant]
     Active Substance: CHOLECALCIFEROL
     Dosage: 50000 UT, QW
     Route: 048
  3. FISH OIL [Concomitant]
     Active Substance: FISH OIL
     Dosage: UNK UNK, QD
     Route: 048
  4. ZOFRAN [Concomitant]
     Active Substance: ONDANSETRON HYDROCHLORIDE
     Indication: NAUSEA
     Dosage: 1 DF, TID, PRN
     Route: 048
  5. ZENPEP [Concomitant]
     Active Substance: PANCRELIPASE AMYLASE\PANCRELIPASE LIPASE\PANCRELIPASE PROTEASE
     Dosage: 6 DF, WITH MEALS, 5 CAPSULES WITH SNACKS, AND 6 CAPSULES BEFORE, DURING, AND AFTER TUBE FEEDS
     Route: 048
  6. ORKAMBI [Suspect]
     Active Substance: IVACAFTOR\LUMACAFTOR
     Indication: CYSTIC FIBROSIS
     Dosage: 2 DF (200/125MG EACH), BID
     Route: 048
     Dates: start: 201509
  7. PULMOZYME [Concomitant]
     Active Substance: DORNASE ALFA
     Dosage: 2.5 ML, BID
     Route: 055
  8. CULTURELLE PROBIOTICS [Concomitant]
     Dosage: 1 DF, QD
     Route: 048
  9. MARINOL [Concomitant]
     Active Substance: DRONABINOL
     Dosage: UNK
  10. NUVARING [Concomitant]
     Active Substance: ETHINYL ESTRADIOL\ETONOGESTREL
     Dosage: PLACE 1 EACH VAGINALLY EVERY 28 DAYS
  11. FOLVITE [Concomitant]
     Active Substance: FOLIC ACID
     Dosage: 400 ?G, QD
     Route: 048
  12. DEKAS PLUS [Concomitant]
     Dosage: 1 DF, BID
     Route: 048
  13. TOBI [Concomitant]
     Active Substance: TOBRAMYCIN
     Dosage: 4 DF, BID TAKE FOR 28 DAYS ON THEN REPEAT EVERY OTHER  MONTH TAKES WITH BACTRIM
     Route: 055
  14. ADVAIR DISKUS [Concomitant]
     Active Substance: FLUTICASONE PROPIONATE\SALMETEROL XINAFOATE
     Dosage: 1 PUFF, BID
     Route: 055
  15. PROVENTIL [Concomitant]
     Active Substance: ALBUTEROL
     Dosage: UNK, TID
     Route: 055
  16. CINNAMON. [Concomitant]
     Active Substance: CINNAMON
     Dosage: 500 MG, QD
     Route: 048
  17. CRANBERRY. [Concomitant]
     Active Substance: CRANBERRY
     Dosage: 500 MG, QD
     Route: 048
  18. MIRALAX [Concomitant]
     Active Substance: POLYETHYLENE GLYCOL 3350
     Dosage: 17 G, PRN
     Route: 048
  19. PRENATAL PLUS [Concomitant]
     Active Substance: .ALPHA.-TOCOPHEROL ACETATE, DL-\.BETA.-CAROTENE\ASCORBIC ACID\CALCIUM CARBONATE\CHOLECALCIFEROL\CUPRIC OXIDE\CYANOCOBALAMIN\FERROUS FUMARATE\FOLIC ACID\NIACINAMIDE\PYRIDOXINE HYDROCHLORIDE\RIBOFLAVIN\THIAMINE MONONITRATE\VITAMIN A ACETATE\ZINC OXIDE
     Dosage: UNK, QD
  20. CAYSTON [Concomitant]
     Active Substance: AZTREONAM
     Dosage: 75 MG, TID
     Route: 055
  21. ALBUTEROL HFA [Concomitant]
     Active Substance: ALBUTEROL SULFATE
     Indication: WHEEZING
     Dosage: 2 PUFFS INTO THE LUNGS EVERY 4 HOURS , PRN
     Route: 055
  22. BACTRIM DS [Concomitant]
     Active Substance: SULFAMETHOXAZOLE\TRIMETHOPRIM
     Dosage: 1 DF, BID  TAKE FOR 28 DAYS ON; THEN REPEAT EVERY OTHER MONTH WITH TOBI PODHALER
     Route: 048
  23. DEXTROSE. [Concomitant]
     Active Substance: DEXTROSE
     Dosage: 85 MG, TID
  24. VITAMIN B12 [Concomitant]
     Active Substance: CYANOCOBALAMIN
     Dosage: PLACE 1 TABLET UNDER THE TONGUE, QD
  25. FERROUS SULFATE. [Concomitant]
     Active Substance: FERROUS SULFATE
     Dosage: 325 MG, QD
     Route: 048
  26. EFFEXOR [Concomitant]
     Active Substance: VENLAFAXINE HYDROCHLORIDE
     Dosage: 1 DF, QD
     Route: 048
  27. VITAMIN E [Concomitant]
     Active Substance: .ALPHA.-TOCOPHEROL
     Dosage: 400 UT, QD
     Route: 048
  28. SODIUM CHLORIDE. [Concomitant]
     Active Substance: SODIUM CHLORIDE
     Dosage: 4 ML, BID
     Route: 055
  29. VITAMIN C [Concomitant]
     Active Substance: ASCORBIC ACID
     Dosage: 1 DF, QD
     Route: 048
  30. ZITHROMAX [Concomitant]
     Active Substance: AZITHROMYCIN DIHYDRATE
     Dosage: 1 DF, MONDAY, WEDNESDAYS AND FRIDAYS
     Route: 048
  31. NUTREN 2.0 [Concomitant]
     Dosage: 4 DF, QD VIA GT. ADDS HEAVY CREAM
  32. DELTASONE [Concomitant]
     Active Substance: PREDNISONE
     Dosage: 1 DF, QD
     Route: 048
  33. VIACTIV [Concomitant]
     Active Substance: CALCIUM\VITAMIN D\VITAMIN K5
     Dosage: 2 DF, QD
     Route: 048
  34. ZYRTEC [Concomitant]
     Active Substance: CETIRIZINE HYDROCHLORIDE
     Indication: SEASONAL ALLERGY
     Dosage: 10 MG, QD
     Route: 048
  35. KLONOPIN [Concomitant]
     Active Substance: CLONAZEPAM
     Dosage: 1 DF, BID
     Route: 048
  36. VIBRAMYCIN [Concomitant]
     Active Substance: DOXYCYCLINE
     Dosage: 100 MG, BID FOR 28 DAYS ON THEN REPEAT EVERY OTHER MONTH TAKES WITH CAYSTON
     Route: 048
  37. ULTRAM [Concomitant]
     Active Substance: TRAMADOL HYDROCHLORIDE
     Dosage: 50 MG, EVERY 6 HOURS, PRN
     Route: 048
  38. REMERON [Concomitant]
     Active Substance: MIRTAZAPINE
     Dosage: 3 DF, QD
     Route: 048

REACTIONS (4)
  - Infective pulmonary exacerbation of cystic fibrosis [Recovering/Resolving]
  - Decreased appetite [Recovered/Resolved]
  - Chest discomfort [Unknown]
  - Fungaemia [Unknown]

NARRATIVE: CASE EVENT DATE: 2016
